FAERS Safety Report 9918908 (Version 2)
Quarter: 2014Q1

REPORT INFORMATION
  Report Type: Spontaneous
  Country: US (occurrence: US)
  Receive Date: 20140224
  Receipt Date: 20140326
  Transmission Date: 20141002
  Serious: No
  Sender: FDA-Public Use
  Company Number: US-PFIZER INC-2014048339

PATIENT
  Age: 71 Year
  Sex: Female

DRUGS (15)
  1. XELJANZ [Suspect]
     Indication: RHEUMATOID ARTHRITIS
     Dosage: 5 MG, 2X/DAY
     Route: 048
     Dates: start: 201401
  2. FOLIC ACID [Concomitant]
     Dosage: 1 MG, UNK
  3. ACIPHEX [Concomitant]
     Dosage: 20 MG, UNK
  4. ESTRADIOL [Concomitant]
     Dosage: 1 MG, UNK
  5. CYMBALTA [Concomitant]
     Dosage: 30 MG, UNK
  6. PREDNISONE [Concomitant]
     Dosage: 5 MG, UNK
  7. SYNTHROID [Concomitant]
     Dosage: 200 UG, UNK
  8. BENTYL [Concomitant]
     Dosage: 10 MG, UNK
  9. CELEBREX [Concomitant]
     Dosage: 200 MG, UNK
  10. SINGULAIR [Concomitant]
     Dosage: 10 MG, UNK
  11. CALCIUM [Concomitant]
     Dosage: 600 MG, UNK
  12. VITAMIN D3 [Concomitant]
     Dosage: 800 IU, UNK
  13. B COMPLEX [Concomitant]
     Dosage: UNK
  14. BIOTIN [Concomitant]
     Dosage: 300 UG, UNK
  15. MULTIVITAMINS W/MINERAL/IRON [Concomitant]
     Dosage: UNK

REACTIONS (3)
  - Local swelling [Unknown]
  - Fatigue [Unknown]
  - Hypersomnia [Unknown]
